FAERS Safety Report 25678251 (Version 1)
Quarter: 2025Q3

REPORT INFORMATION
  Report Type: Report from Study
  Country: US (occurrence: US)
  Receive Date: 20250813
  Receipt Date: 20250813
  Transmission Date: 20251020
  Serious: Yes (Other)
  Sender: REGENERON
  Company Number: US-REGENERON PHARMACEUTICALS, INC.-2025-125356

PATIENT
  Sex: Female

DRUGS (3)
  1. CEMIPLIMAB [Suspect]
     Active Substance: CEMIPLIMAB
     Indication: Non-small cell lung cancer
     Dosage: 350 MG, Q3W
     Route: 042
     Dates: start: 20250728
  2. CARBOPLATIN [Concomitant]
     Active Substance: CARBOPLATIN
     Indication: Chemotherapy
  3. PEMETREXED [Concomitant]
     Active Substance: PEMETREXED
     Indication: Chemotherapy

REACTIONS (4)
  - Cough [Unknown]
  - Anosmia [Unknown]
  - Ageusia [Unknown]
  - Fatigue [Unknown]

NARRATIVE: CASE EVENT DATE: 20250728
